FAERS Safety Report 17165778 (Version 1)
Quarter: 2020Q3

REPORT INFORMATION
  Report Type: Spontaneous
  Country: AT (occurrence: AT)
  Receive Date: 20191217
  Receipt Date: 20191217
  Transmission Date: 20201105
  Serious: Yes (Life-Threatening, Other)
  Sender: FDA-Public Use
  Company Number: AT-AMNEAL PHARMACEUTICALS-2019-AMRX-03231

PATIENT
  Age: 26 Year
  Sex: Female

DRUGS (4)
  1. ADRENACLICK [Suspect]
     Active Substance: EPINEPHRINE
     Indication: HYPOTENSION
  2. ADRENACLICK [Suspect]
     Active Substance: EPINEPHRINE
     Indication: BRADYCARDIA
     Dosage: 1 MILLIGRAM, SINGLE (HIGH DOSE)
     Route: 042
  3. EPHEDRINE. [Suspect]
     Active Substance: EPHEDRINE
     Indication: HYPOTENSION
  4. EPHEDRINE. [Suspect]
     Active Substance: EPHEDRINE
     Indication: BRADYCARDIA
     Dosage: 10 MILLIGRAM, SINGLE
     Route: 042

REACTIONS (6)
  - Acute macular outer retinopathy [Not Recovered/Not Resolved]
  - Angina pectoris [Unknown]
  - Maternal exposure during pregnancy [Unknown]
  - Hypertensive crisis [Unknown]
  - Arrhythmia [Unknown]
  - Wrong product administered [Unknown]
